FAERS Safety Report 25425861 (Version 1)
Quarter: 2025Q2

REPORT INFORMATION
  Report Type: Spontaneous
  Country: CA (occurrence: CA)
  Receive Date: 20250612
  Receipt Date: 20250612
  Transmission Date: 20250717
  Serious: Yes (Other)
  Sender: Haleon PLC
  Company Number: CA-HALEON-2246444

PATIENT
  Age: 3 Year
  Sex: Male

DRUGS (1)
  1. ADVIL [Suspect]
     Active Substance: IBUPROFEN
     Indication: Pharyngitis streptococcal
     Route: 048

REACTIONS (3)
  - Angioedema [Unknown]
  - Product use in unapproved indication [Unknown]
  - Conjunctivitis [Unknown]
